FAERS Safety Report 10878880 (Version 1)
Quarter: 2015Q1

REPORT INFORMATION
  Report Type: Spontaneous
  Country: US (occurrence: US)
  Receive Date: 20150302
  Receipt Date: 20150302
  Transmission Date: 20150721
  Serious: No
  Sender: FDA-Public Use
  Company Number: US-BAYER-2015-030740

PATIENT
  Age: 92 Year
  Sex: Female
  Weight: 51.7 kg

DRUGS (2)
  1. ALEVE [Suspect]
     Active Substance: NAPROXEN SODIUM
     Dosage: 1 DF, EVERY 12 HRS
     Route: 048
     Dates: start: 201502, end: 201502
  2. ATENOLOL. [Concomitant]
     Active Substance: ATENOLOL
     Dosage: UNK

REACTIONS (1)
  - Medication error [None]

NARRATIVE: CASE EVENT DATE: 201502
